FAERS Safety Report 8109355 (Version 3)
Quarter: 2013Q4

REPORT INFORMATION
  Report Type: Spontaneous
  Country: US (occurrence: US)
  Receive Date: 20110826
  Receipt Date: 20131202
  Transmission Date: 20140711
  Serious: Yes (Hospitalization)
  Sender: FDA-Public Use
  Company Number: US-BAYER-2011-075221

PATIENT
  Sex: Female
  Weight: 54.42 kg

DRUGS (5)
  1. YASMIN [Suspect]
     Dosage: UNK
     Dates: start: 2005
  2. OCELLA [Suspect]
     Dosage: UNK
     Dates: start: 2005
  3. VITAMIN C [Concomitant]
  4. ALLEGRA [Concomitant]
     Dosage: UNK
     Dates: start: 200809
  5. SINGULAIR [Concomitant]
     Dosage: UNK
     Dates: start: 200809

REACTIONS (4)
  - Gallbladder injury [None]
  - Cholecystitis acute [None]
  - Injury [None]
  - Pain [None]
